FAERS Safety Report 12393881 (Version 1)
Quarter: 2016Q2

REPORT INFORMATION
  Report Type: Spontaneous
  Country: US (occurrence: US)
  Receive Date: 20160523
  Receipt Date: 20160523
  Transmission Date: 20160815
  Serious: No
  Sender: FDA-Public Use
  Company Number: US-PFIZER INC-2016249133

PATIENT
  Sex: Female

DRUGS (1)
  1. ZIPRASIDONE HCL [Suspect]
     Active Substance: ZIPRASIDONE HYDROCHLORIDE
     Indication: ABNORMAL BEHAVIOUR
     Dosage: 60 MG, 1X/DAY AT BEDTIME

REACTIONS (6)
  - Crying [Recovered/Resolved]
  - Altered visual depth perception [Recovered/Resolved]
  - Panic reaction [Recovered/Resolved]
  - Product use issue [Recovered/Resolved]
  - Feeling abnormal [Recovered/Resolved]
  - Hyperhidrosis [Recovered/Resolved]
